FAERS Safety Report 7416848-5 (Version None)
Quarter: 2011Q2

REPORT INFORMATION
  Report Type: 
  Country: None (occurrence: None)
  Receive Date: 20110407
  Receipt Date: 20110328
  Transmission Date: 20111010
  Serious: Yes (Hospitalization, Other)
  Sender: FDA-Public Use
  Company Number: DSM-2011-00364

PATIENT
  Age: 71 Year
  Sex: Female

DRUGS (2)
  1. OLMESARTAN MEDOXOMIL AND HYDROCHLOROTHIZIDE [Suspect]
     Indication: PRODUCT USED FOR UNKNOWN INDICATION
     Dosage: 20/25MG, ORAL
     Route: 048
     Dates: start: 20101027, end: 20101207
  2. ZOPICLONE (ZOPICLONE) (ZOPICLONE) [Concomitant]

REACTIONS (4)
  - TOXIC SKIN ERUPTION [None]
  - DERMATILLOMANIA [None]
  - PRURITUS [None]
  - ERYTHEMA [None]
